FAERS Safety Report 9180201 (Version 2)
Quarter: 2013Q4

REPORT INFORMATION
  Report Type: Spontaneous
  Country: GB (occurrence: GB)
  Receive Date: 20130321
  Receipt Date: 20131021
  Transmission Date: 20140711
  Serious: Yes (Other)
  Sender: FDA-Public Use
  Company Number: GB-SANOFI-AVENTIS-2013SA027330

PATIENT
  Age: 61 Year
  Sex: Female
  Weight: 61.68 kg

DRUGS (3)
  1. CLOPIDOGREL BISULFATE [Suspect]
     Indication: RETINAL ARTERY OCCLUSION
     Dosage: CUMULATIVE DOSE 3
     Route: 048
     Dates: start: 20121012, end: 20121031
  2. LEVOTHYROXINE [Concomitant]
  3. ADCAL-D3 [Concomitant]

REACTIONS (3)
  - Dissociation [Unknown]
  - Vertigo [Recovering/Resolving]
  - Off label use [Unknown]
